FAERS Safety Report 25892924 (Version 3)
Quarter: 2025Q4

REPORT INFORMATION
  Report Type: Report from Study
  Country: CA (occurrence: CA)
  Receive Date: 20251007
  Receipt Date: 20251109
  Transmission Date: 20260118
  Serious: Yes (Other)
  Sender: ABBVIE
  Company Number: CA-ABBVIE-6487454

PATIENT
  Age: 21 Year
  Sex: Male

DRUGS (4)
  1. SKYRIZI [Suspect]
     Active Substance: RISANKIZUMAB-RZAA
     Indication: Crohn^s disease
     Dosage: FORM STRENGTH 360MG/2.4ML INJECT 360MG SUBCUTANEOUSLY AT WEEK 12 AND EVERY 8 WEEKS THEREAFTER USI...
     Route: 058
  2. APIXABAN [Concomitant]
     Active Substance: APIXABAN
     Indication: Product used for unknown indication
  3. ENTOCORT [Concomitant]
     Active Substance: BUDESONIDE
     Indication: Product used for unknown indication
  4. ACETAMINOPHEN\TRAMADOL [Concomitant]
     Active Substance: ACETAMINOPHEN\TRAMADOL
     Indication: Product used for unknown indication

REACTIONS (15)
  - Inguinal hernia [Unknown]
  - Abdominal discomfort [Unknown]
  - Dizziness [Unknown]
  - Feeling cold [Unknown]
  - Nausea [Unknown]
  - White blood cell count increased [Unknown]
  - Thrombophlebitis [Unknown]
  - Joint swelling [Unknown]
  - Obstruction [Unknown]
  - Arthralgia [Unknown]
  - Haemorrhage [Unknown]
  - Drug ineffective [Unknown]
  - Superficial vein thrombosis [Unknown]
  - Crohn^s disease [Unknown]
  - Cellulitis [Unknown]

NARRATIVE: CASE EVENT DATE: 20250819
